FAERS Safety Report 7449859-4 (Version None)
Quarter: 2011Q2

REPORT INFORMATION
  Report Type: 
  Country: None (occurrence: None)
  Receive Date: 20110502
  Receipt Date: 20110425
  Transmission Date: 20111010
  Serious: Yes (Other)
  Sender: FDA-Public Use
  Company Number: US-JNJFOC-20110101098

PATIENT
  Sex: Female

DRUGS (3)
  1. LEVAQUIN [Suspect]
     Indication: BRONCHITIS
     Route: 048
  2. LEVAQUIN [Suspect]
     Indication: PRODUCT USED FOR UNKNOWN INDICATION
     Route: 048
  3. LEVAQUIN [Suspect]
     Indication: SINUSITIS
     Route: 048

REACTIONS (3)
  - TENDONITIS [None]
  - TRIGGER FINGER [None]
  - EPICONDYLITIS [None]
